FAERS Safety Report 25111303 (Version 2)
Quarter: 2025Q2

REPORT INFORMATION
  Report Type: Spontaneous
  Country: JP (occurrence: JP)
  Receive Date: 20250324
  Receipt Date: 20250603
  Transmission Date: 20250717
  Serious: Yes (Death, Hospitalization, Other)
  Sender: ROCHE
  Company Number: JP-ROCHE-3349673

PATIENT
  Age: 44 Year
  Sex: Female
  Weight: 49.0 kg

DRUGS (6)
  1. GAZYVA [Suspect]
     Active Substance: OBINUTUZUMAB
     Indication: Follicular lymphoma
     Route: 042
     Dates: start: 20230424, end: 20240502
  2. SULFAMETHOXAZOLE\TRIMETHOPRIM [Suspect]
     Active Substance: SULFAMETHOXAZOLE\TRIMETHOPRIM
     Indication: Follicular lymphoma
     Route: 065
  3. BENDAMUSTINE HYDROCHLORIDE [Concomitant]
     Active Substance: BENDAMUSTINE HYDROCHLORIDE
     Indication: Follicular lymphoma
     Route: 042
     Dates: start: 20230424
  4. LORAZEPAM [Concomitant]
     Active Substance: LORAZEPAM
  5. KOSOSAN [Concomitant]
  6. VALACYCLOVIR HYDROCHLORIDE [Concomitant]
     Active Substance: VALACYCLOVIR HYDROCHLORIDE
     Route: 048

REACTIONS (13)
  - Platelet count decreased [Recovered/Resolved]
  - Neutrophil count decreased [Not Recovered/Not Resolved]
  - Pneumonia influenzal [Fatal]
  - Acute respiratory distress syndrome [Fatal]
  - Metabolic acidosis [Fatal]
  - Immunodeficiency [Fatal]
  - Acute kidney injury [Unknown]
  - Disseminated intravascular coagulation [Unknown]
  - Circulatory collapse [Fatal]
  - Septic shock [Fatal]
  - Influenza [Fatal]
  - Liver disorder [Fatal]
  - Anaphylactic reaction [Unknown]

NARRATIVE: CASE EVENT DATE: 20230427
